FAERS Safety Report 5759920-8 (Version None)
Quarter: 2008Q2

REPORT INFORMATION
  Report Type: 
  Country: None (occurrence: None)
  Receive Date: 20080605
  Receipt Date: 20080604
  Transmission Date: 20081010
  Serious: Yes (Other)
  Sender: FDA-Public Use
  Company Number: IT-BRISTOL-MYERS SQUIBB COMPANY-14216428

PATIENT

DRUGS (1)
  1. HYDROXYUREA [Suspect]
     Indication: THROMBOCYTHAEMIA

REACTIONS (1)
  - TRANSIENT ISCHAEMIC ATTACK [None]
